FAERS Safety Report 12850938 (Version 1)
Quarter: 2016Q4

REPORT INFORMATION
  Report Type: Report from Study
  Country: US (occurrence: US)
  Receive Date: 20161015
  Receipt Date: 20161015
  Transmission Date: 20170207
  Serious: Yes (Other)
  Sender: FDA-Public Use
  Company Number: US-AMGEN-USASL2016141035

PATIENT
  Age: 61 Year
  Sex: Female

DRUGS (3)
  1. OTEZLA [Concomitant]
     Active Substance: APREMILAST
     Dosage: UNK
  2. ENBREL [Suspect]
     Active Substance: ETANERCEPT
     Indication: RHEUMATOID ARTHRITIS
     Dosage: UNK UNK, UNK
     Route: 065
     Dates: start: 2014
  3. ENBREL [Suspect]
     Active Substance: ETANERCEPT
     Indication: PSORIASIS

REACTIONS (6)
  - Psoriasis [Unknown]
  - Pain [Unknown]
  - Medical procedure [Unknown]
  - Knee arthroplasty [Unknown]
  - Coronary arterial stent insertion [Unknown]
  - Osteomyelitis [Unknown]

NARRATIVE: CASE EVENT DATE: 2014
